FAERS Safety Report 17762086 (Version 1)
Quarter: 2020Q2

REPORT INFORMATION
  Report Type: Spontaneous
  Country: FR (occurrence: FR)
  Receive Date: 20200508
  Receipt Date: 20200508
  Transmission Date: 20200714
  Serious: Yes (Death, Congenital Anomaly)
  Sender: FDA-Public Use
  Company Number: NVSC2020FR122987

PATIENT

DRUGS (6)
  1. HYDROXYZINE [Suspect]
     Active Substance: HYDROXYZINE HYDROCHLORIDE
     Indication: FOETAL EXPOSURE DURING PREGNANCY
     Dosage: UNK (MATERNAL DOSE: 25 MG QD)
     Route: 064
     Dates: start: 20191018, end: 20200124
  2. QUETIAPINE. [Suspect]
     Active Substance: QUETIAPINE
     Indication: FOETAL EXPOSURE DURING PREGNANCY
     Dosage: UNK (MATERNAL DOSE: 400 MG QD)
     Route: 064
     Dates: start: 20191018, end: 20200124
  3. VENLAFAXINE [Suspect]
     Active Substance: VENLAFAXINE HYDROCHLORIDE
     Indication: FOETAL EXPOSURE DURING PREGNANCY
     Dosage: UNK (MATERNAL DOSE: 100 MG QD)
     Route: 064
     Dates: start: 20191018, end: 20200124
  4. TRAMADOL. [Suspect]
     Active Substance: TRAMADOL
     Indication: FOETAL EXPOSURE DURING PREGNANCY
     Dosage: UNK (MATERNAL DOSE: 100 MG QD)
     Route: 064
     Dates: start: 20191018, end: 20200124
  5. INSULINE [Suspect]
     Active Substance: INSULIN NOS
     Indication: FOETAL EXPOSURE DURING PREGNANCY
     Dosage: UNK (MATERNAL DOSE)
     Route: 064
     Dates: start: 20191218, end: 20200124
  6. OMEPRAZOLE. [Suspect]
     Active Substance: OMEPRAZOLE
     Indication: FOETAL EXPOSURE DURING PREGNANCY
     Dosage: UNK (MATERNAL DOSE: 20 MG QD)
     Route: 064
     Dates: start: 20191018, end: 20200124

REACTIONS (4)
  - Congenital central nervous system anomaly [Fatal]
  - Congenital hand malformation [Fatal]
  - Heart disease congenital [Fatal]
  - Spine malformation [Fatal]

NARRATIVE: CASE EVENT DATE: 20191227
